FAERS Safety Report 6964451-3 (Version None)
Quarter: 2010Q3

REPORT INFORMATION
  Report Type: 
  Country: None (occurrence: None)
  Receive Date: 20100903
  Receipt Date: 20100824
  Transmission Date: 20110219
  Serious: Yes (Other)
  Sender: FDA-Public Use
  Company Number: US-PFIZER INC-2010107145

PATIENT
  Sex: Female
  Weight: 73.481 kg

DRUGS (4)
  1. TOVIAZ [Suspect]
     Indication: HYPERTONIC BLADDER
     Dosage: 8 MG, 1X/DAY
     Dates: start: 20100101
  2. ZOLOFT [Suspect]
     Indication: BIPOLAR II DISORDER
     Dosage: 100 MG, 1X/DAY
  3. SERTRALINE HYDROCHLORIDE [Suspect]
     Indication: BIPOLAR II DISORDER
     Dosage: 100 MG, 1X/DAY
  4. VITAMIN D [Concomitant]
     Dosage: UNK

REACTIONS (11)
  - ALOPECIA [None]
  - ARTHRITIS [None]
  - B-CELL LYMPHOMA [None]
  - BACK DISORDER [None]
  - CONDITION AGGRAVATED [None]
  - CYSTITIS [None]
  - DRUG INEFFECTIVE [None]
  - HYPERTONIC BLADDER [None]
  - NON-HODGKIN'S LYMPHOMA [None]
  - PYREXIA [None]
  - URINARY RETENTION [None]
